FAERS Safety Report 4924637-6 (Version None)
Quarter: 2006Q1

REPORT INFORMATION
  Report Type: 
  Country: None (occurrence: None)
  Receive Date: 20060127
  Receipt Date: 20051018
  Transmission Date: 20060701
  Serious: Yes (Other)
  Sender: FDA-Public Use
  Company Number: 2005145378

PATIENT
  Age: 53 Year
  Sex: Female
  Weight: 71.2147 kg

DRUGS (1)
  1. LYRICA [Suspect]
     Indication: PAIN
     Dosage: 150 MG (50 MG,3 IN 1 D)
     Dates: start: 20051012, end: 20051017

REACTIONS (2)
  - FUNGAL INFECTION [None]
  - URTICARIA [None]
